FAERS Safety Report 5503755-8 (Version None)
Quarter: 2007Q4

REPORT INFORMATION
  Report Type: 
  Country: None (occurrence: None)
  Receive Date: 20071029
  Receipt Date: 20071029
  Transmission Date: 20080405
  Serious: No
  Sender: FDA-Public Use
  Company Number: None

PATIENT
  Age: 60 Year
  Sex: Female
  Weight: 77.1115 kg

DRUGS (1)
  1. TAB HEARTGARD 30 UNK [Suspect]
     Indication: DRUG ADMINISTRATION ERROR
     Dosage: 68 MICROGM/1X/PO
     Route: 048
     Dates: start: 20071004, end: 20071004

REACTIONS (3)
  - ACCIDENTAL EXPOSURE [None]
  - DRY MOUTH [None]
  - WRONG DRUG ADMINISTERED [None]
